FAERS Safety Report 13626335 (Version 1)
Quarter: 2017Q2

REPORT INFORMATION
  Report Type: Spontaneous
  Country: US (occurrence: US)
  Receive Date: 20170531
  Receipt Date: 20170531
  Transmission Date: 20170830
  Serious: Yes (Disabling)
  Sender: FDA-Public Use
  Company Number: US-ASTELLAS-1345834

PATIENT
  Age: 66 Year
  Sex: Male
  Weight: 86.5 kg

DRUGS (6)
  1. TARCEVA [Suspect]
     Active Substance: ERLOTINIB HYDROCHLORIDE
     Route: 048
     Dates: start: 20140627
  2. TARCEVA [Suspect]
     Active Substance: ERLOTINIB HYDROCHLORIDE
     Route: 048
     Dates: start: 20140117
  3. TARCEVA [Suspect]
     Active Substance: ERLOTINIB HYDROCHLORIDE
     Route: 048
     Dates: start: 20141122
  4. TARCEVA [Suspect]
     Active Substance: ERLOTINIB HYDROCHLORIDE
     Indication: LUNG NEOPLASM MALIGNANT
     Route: 048
     Dates: start: 20140702
  5. TARCEVA [Suspect]
     Active Substance: ERLOTINIB HYDROCHLORIDE
     Indication: LUNG CANCER METASTATIC
     Dosage: TEMPORARILY INTERRUPTED FOR 1 WEEK
     Route: 048
     Dates: start: 20140114, end: 20140626
  6. DOXYCYCLINE. [Concomitant]
     Active Substance: DOXYCYCLINE
     Route: 048

REACTIONS (13)
  - Rash [Unknown]
  - Abdominal discomfort [Unknown]
  - Fatigue [Unknown]
  - Myalgia [Unknown]
  - Headache [Unknown]
  - Abdominal pain upper [Unknown]
  - Gastrointestinal disorder [Unknown]
  - Muscle spasms [Unknown]
  - Malaise [Unknown]
  - Diarrhoea [Unknown]
  - Acne [Recovered/Resolved]
  - Dry skin [Recovering/Resolving]
  - Hair growth abnormal [Not Recovered/Not Resolved]

NARRATIVE: CASE EVENT DATE: 201405
